FAERS Safety Report 9565406 (Version 1)
Quarter: 2013Q3

REPORT INFORMATION
  Report Type: Spontaneous
  Country: DE (occurrence: DE)
  Receive Date: 20130930
  Receipt Date: 20130930
  Transmission Date: 20140515
  Serious: Yes (Congenital Anomaly, Other)
  Sender: FDA-Public Use
  Company Number: DE-ROCHE-1282215

PATIENT
  Age: 1 Day
  Sex: Female
  Weight: 3.28 kg

DRUGS (2)
  1. RIVOTRIL [Suspect]
     Indication: PRODUCT USED FOR UNKNOWN INDICATION
     Route: 064
  2. LAMICTAL [Suspect]
     Indication: PRODUCT USED FOR UNKNOWN INDICATION
     Route: 064

REACTIONS (5)
  - Thrombocytosis [Recovered/Resolved]
  - Atrial septal defect [Recovering/Resolving]
  - Transaminases increased [Recovered/Resolved]
  - Maternal exposure timing unspecified [Unknown]
  - Exposure during breast feeding [Unknown]
